FAERS Safety Report 19388207 (Version 4)
Quarter: 2021Q3

REPORT INFORMATION
  Report Type: Spontaneous
  Country: DE (occurrence: DE)
  Receive Date: 20210607
  Receipt Date: 20210725
  Transmission Date: 20211014
  Serious: No
  Sender: FDA-Public Use
  Company Number: DE-UCBSA-2021026409

PATIENT
  Sex: Female

DRUGS (2)
  1. NEUPRO [Suspect]
     Active Substance: ROTIGOTINE
     Indication: RESTLESS LEGS SYNDROME
     Dosage: 2 MG
  2. VITAMIN B12 [COBAMAMIDE] [Concomitant]
     Active Substance: COBAMAMIDE
     Indication: PRODUCT USED FOR UNKNOWN INDICATION

REACTIONS (5)
  - Application site pain [Unknown]
  - Sleep disorder [Unknown]
  - Application site inflammation [Unknown]
  - Muscle spasms [Unknown]
  - Device adhesion issue [Unknown]
